FAERS Safety Report 7689754-9 (Version None)
Quarter: 2011Q3

REPORT INFORMATION
  Report Type: 
  Country: None (occurrence: None)
  Receive Date: 20110817
  Receipt Date: 20110806
  Transmission Date: 20111222
  Serious: Yes (Other)
  Sender: FDA-Public Use
  Company Number: US-RB-031233-11

PATIENT
  Age: 29 Year
  Sex: Female

DRUGS (1)
  1. SUBOXONE [Suspect]
     Indication: PRODUCT USED FOR UNKNOWN INDICATION
     Dosage: DOSING INFORMATION UNKNOWN
     Route: 065

REACTIONS (7)
  - LOSS OF CONSCIOUSNESS [None]
  - HYPERHIDROSIS [None]
  - FATIGUE [None]
  - SUBSTANCE ABUSE [None]
  - DIARRHOEA [None]
  - HYPERVENTILATION [None]
  - WEIGHT DECREASED [None]
